FAERS Safety Report 18466967 (Version 1)
Quarter: 2020Q4

REPORT INFORMATION
  Report Type: Spontaneous
  Country: US (occurrence: US)
  Receive Date: 20201104
  Receipt Date: 20201104
  Transmission Date: 20210114
  Serious: Yes (Life-Threatening, Other)
  Sender: FDA-Public Use
  Company Number: None

PATIENT
  Age: 77 Year
  Sex: Male

DRUGS (1)
  1. BUMETANIDE (BUMETANIDE 2MG TAB) [Suspect]
     Active Substance: BUMETANIDE
     Indication: CARDIAC FAILURE CONGESTIVE
     Route: 048
     Dates: start: 20200824, end: 20200828

REACTIONS (7)
  - Palpitations [None]
  - Hypokalaemia [None]
  - Ventricular extrasystoles [None]
  - Therapy interrupted [None]
  - Electrocardiogram T wave abnormal [None]
  - Ventricular tachycardia [None]
  - Cardiac arrest [None]

NARRATIVE: CASE EVENT DATE: 20200825
